FAERS Safety Report 4287161-2 (Version None)
Quarter: 2004Q1

REPORT INFORMATION
  Report Type: 
  Country: None (occurrence: None)
  Receive Date: 20040121
  Receipt Date: 20031008
  Transmission Date: 20041129
  Serious: Yes (Hospitalization)
  Sender: FDA-Public Use
  Company Number: A03200301838

PATIENT
  Age: 57 Year
  Sex: Female

DRUGS (14)
  1. PLAVIX [Suspect]
     Indication: TRANSIENT ISCHAEMIC ATTACK
     Dosage: 75 MG QD - ORAL
     Route: 048
     Dates: start: 20030701, end: 20030701
  2. LEXAPRO [Suspect]
     Indication: ANXIETY
     Dosage: 10 MG QD - ORAL
     Route: 048
     Dates: start: 20030701, end: 20030701
  3. LEXAPRO [Suspect]
     Indication: DEPRESSION
     Dosage: 10 MG QD - ORAL
     Route: 048
     Dates: start: 20030701, end: 20030701
  4. ROSIGLITAZONE MALEATE [Concomitant]
  5. GLIMEPIRIDE [Concomitant]
  6. ACETYLSALICYLIC ACID SRT [Concomitant]
  7. SIMVASTATIN [Concomitant]
  8. RAMIPRIL [Concomitant]
  9. ALPRAZOLAM [Concomitant]
  10. CLONIDINE [Concomitant]
  11. SERTRALINE HCL [Concomitant]
  12. CLONAZEPAM [Concomitant]
  13. NIFEDIPINE [Concomitant]
  14. METOPROLOL SUCCINATE [Concomitant]

REACTIONS (9)
  - BLOOD GLUCOSE INCREASED [None]
  - GASTRITIS [None]
  - GASTROINTESTINAL HAEMORRHAGE [None]
  - HALLUCINATION, VISUAL [None]
  - IRON DEFICIENCY ANAEMIA [None]
  - MENTAL STATUS CHANGES [None]
  - OESOPHAGITIS [None]
  - SLEEP DISORDER [None]
  - TRAUMATIC HAEMATOMA [None]
